FAERS Safety Report 21309600 (Version 2)
Quarter: 2022Q3

REPORT INFORMATION
  Report Type: Report from Study
  Country: VN (occurrence: VN)
  Receive Date: 20220908
  Receipt Date: 20220916
  Transmission Date: 20221027
  Serious: Yes (Death, Hospitalization, Other)
  Sender: FDA-Public Use
  Company Number: VN-SA-SAC20220805001082

PATIENT
  Age: 2 Year
  Sex: Female
  Weight: 10 kg

DRUGS (1)
  1. MYOZYME [Suspect]
     Active Substance: ALGLUCOSIDASE ALFA
     Indication: Glycogen storage disease type II
     Dosage: 20 MG/KG, QOW
     Route: 042
     Dates: start: 20210305, end: 20220714

REACTIONS (6)
  - Death [Fatal]
  - Pneumonia [Fatal]
  - Respiratory failure [Fatal]
  - Disease progression [Fatal]
  - Condition aggravated [Fatal]
  - Pyrexia [Fatal]

NARRATIVE: CASE EVENT DATE: 20220723
